FAERS Safety Report 4313815-5 (Version None)
Quarter: 2004Q1

REPORT INFORMATION
  Report Type: 
  Country: None (occurrence: None)
  Receive Date: 20040305
  Receipt Date: 20040219
  Transmission Date: 20041129
  Serious: No
  Sender: FDA-Public Use
  Company Number: DE-SHR-04-021517

PATIENT
  Sex: Female

DRUGS (1)
  1. BETASERON [Suspect]
     Dosage: EVERY 2, SUBCUTANEOUS
     Route: 058

REACTIONS (3)
  - ABSCESS [None]
  - ACNE [None]
  - DISEASE RECURRENCE [None]
